FAERS Safety Report 15580864 (Version 1)
Quarter: 2018Q4

REPORT INFORMATION
  Report Type: Spontaneous
  Country: US (occurrence: US)
  Receive Date: 20181102
  Receipt Date: 20181102
  Transmission Date: 20190205
  Serious: No
  Sender: FDA-Public Use
  Company Number: US-PFIZER INC-2018443005

PATIENT
  Age: 66 Year

DRUGS (1)
  1. LYRICA [Suspect]
     Active Substance: PREGABALIN
     Dosage: 100 MG, DAILY (25MG IN THE MORNING, 25MG IN THE AFTERNOON AND 50 MG AT NIGHT )

REACTIONS (3)
  - Pain [Unknown]
  - Contusion [Unknown]
  - Product dispensing error [Unknown]
